FAERS Safety Report 23644303 (Version 1)
Quarter: 2024Q1

REPORT INFORMATION
  Report Type: Spontaneous
  Country: US (occurrence: None)
  Receive Date: 20240317
  Receipt Date: 20240317
  Transmission Date: 20240410
  Serious: Yes (Hospitalization, Disabling)
  Sender: FDA-Public Use
  Company Number: None

PATIENT
  Age: 29 Year
  Sex: Female
  Weight: 96.75 kg

DRUGS (3)
  1. FLUOXETINE [Suspect]
     Active Substance: FLUOXETINE HYDROCHLORIDE
     Indication: Obsessive-compulsive disorder
     Dosage: 1 TABLET DAILY ORAL
     Route: 048
  2. TENS device [Concomitant]
  3. IRON [Concomitant]
     Active Substance: IRON

REACTIONS (13)
  - Mania [None]
  - Therapy cessation [None]
  - Anorgasmia [None]
  - Genital paraesthesia [None]
  - Anhedonia [None]
  - Sexual dysfunction [None]
  - Vulvovaginal dryness [None]
  - Blunted affect [None]
  - Depersonalisation/derealisation disorder [None]
  - Derealisation [None]
  - Hypoaesthesia [None]
  - Hypoaesthesia [None]
  - Hypoaesthesia [None]

NARRATIVE: CASE EVENT DATE: 20230828
